FAERS Safety Report 26147633 (Version 1)
Quarter: 2025Q4

REPORT INFORMATION
  Report Type: Spontaneous
  Country: EU (occurrence: EU)
  Receive Date: 20251211
  Receipt Date: 20251211
  Transmission Date: 20260118
  Serious: Yes (Life-Threatening, Hospitalization)
  Sender: ELI LILLY AND COMPANY
  Company Number: EU-ELI_LILLY_AND_COMPANY-ES202512011471

PATIENT
  Age: 56 Year
  Sex: Male

DRUGS (8)
  1. PEMETREXED [Suspect]
     Active Substance: PEMETREXED
     Indication: Lung adenocarcinoma stage IV
     Dosage: UNK UNK, OTHER (1 CYCLE EVERY 3 WEEKS)
     Route: 042
     Dates: start: 20250225
  2. CARBOPLATIN [Suspect]
     Active Substance: CARBOPLATIN
     Indication: Lung adenocarcinoma stage IV
     Dosage: UNK UNK, OTHER (1 CYCLE EVERY THREE WEEKS)
     Route: 042
     Dates: start: 20250225, end: 20250430
  3. KEYTRUDA [Suspect]
     Active Substance: PEMBROLIZUMAB
     Indication: Lung adenocarcinoma stage IV
     Dosage: UNK UNK, OTHER (1 CYCLE EVERY THREE WEEKS)
     Route: 042
     Dates: start: 20250225, end: 20250430
  4. OMEPRAZOLE [Concomitant]
     Active Substance: OMEPRAZOLE
     Indication: Prophylaxis
     Dosage: 1 DOSAGE FORM, DAILY
     Route: 048
     Dates: start: 20250225
  5. CYANOCOBALAMIN [Concomitant]
     Active Substance: CYANOCOBALAMIN
     Indication: Anaemia
     Dosage: 1 DOSAGE FORM, OTHER (EVERY 60 DAYS)
     Route: 030
     Dates: start: 20250217
  6. TRELEGY ELLIPTA [Concomitant]
     Active Substance: FLUTICASONE FUROATE\UMECLIDINIUM BROMIDE\VILANTEROL TRIFENATATE
     Indication: Product used for unknown indication
     Dosage: 1 UNK
     Dates: start: 20240614
  7. VENTOLIN [Concomitant]
     Active Substance: ALBUTEROL SULFATE
     Indication: Product used for unknown indication
     Dosage: 1 INH CADA 8 HORAS
     Dates: start: 20240614
  8. ZOLICO [FOLIC ACID] [Concomitant]
     Indication: Anaemia
     Dosage: 1 DOSAGE FORM, DAILY
     Route: 048
     Dates: start: 20250217

REACTIONS (3)
  - Erythema multiforme [Recovered/Resolved]
  - Pancreatitis acute [Recovered/Resolved]
  - Acute kidney injury [Recovered/Resolved]

NARRATIVE: CASE EVENT DATE: 20250501
